FAERS Safety Report 22805423 (Version 2)
Quarter: 2023Q4

REPORT INFORMATION
  Report Type: Report from Study
  Country: US (occurrence: US)
  Receive Date: 20230809
  Receipt Date: 20231212
  Transmission Date: 20240109
  Serious: Yes (Other)
  Sender: FDA-Public Use
  Company Number: US-002147023-NVSC2023US159625

PATIENT
  Age: 83 Year
  Sex: Female

DRUGS (2)
  1. ENTRESTO [Suspect]
     Active Substance: SACUBITRIL\VALSARTAN
     Indication: Product used for unknown indication
     Dosage: UNK,BID
     Route: 065
     Dates: start: 202306
  2. LOSARTAN [Suspect]
     Active Substance: LOSARTAN
     Indication: Product used for unknown indication
     Dosage: UNK
     Route: 065
     Dates: start: 2002, end: 202306

REACTIONS (14)
  - Type 2 diabetes mellitus [Unknown]
  - Cardiac failure [Unknown]
  - Weight increased [Recovering/Resolving]
  - Adverse drug reaction [Recovering/Resolving]
  - Sinusitis [Recovered/Resolved]
  - Cough [Unknown]
  - Throat clearing [Unknown]
  - Atrioventricular block [Unknown]
  - Seasonal allergy [Not Recovered/Not Resolved]
  - Arthritis [Unknown]
  - Neck pain [Unknown]
  - Movement disorder [Recovering/Resolving]
  - Back pain [Unknown]
  - Condition aggravated [Unknown]

NARRATIVE: CASE EVENT DATE: 20230805
